FAERS Safety Report 16927730 (Version 1)
Quarter: 2019Q4

REPORT INFORMATION
  Report Type: Report from Study
  Country: GB (occurrence: GB)
  Receive Date: 20191016
  Receipt Date: 20191016
  Transmission Date: 20200122
  Serious: Yes (Death, Life-Threatening, Hospitalization)
  Sender: FDA-Public Use
  Company Number: PHHO2008GB017165

PATIENT
  Age: 42 Year
  Sex: Male
  Weight: 84.9 kg

DRUGS (8)
  1. PAZOPANIB [Suspect]
     Active Substance: PAZOPANIB
     Indication: COLORECTAL CANCER
     Dosage: 800 MG/M2, CYCLIC
     Route: 048
     Dates: start: 20080207, end: 20081015
  2. TRAMADOL. [Concomitant]
     Active Substance: TRAMADOL
     Indication: ABDOMINAL PAIN
     Dosage: 50 MG, QID
     Route: 048
     Dates: start: 20081029
  3. DEXAMETHASONE. [Concomitant]
     Active Substance: DEXAMETHASONE
     Indication: PRODUCT USED FOR UNKNOWN INDICATION
     Dosage: 4 MG, BID
     Route: 048
     Dates: start: 20081023, end: 20081031
  4. OXALIPLATIN. [Suspect]
     Active Substance: OXALIPLATIN
     Indication: COLORECTAL CANCER
     Dosage: 100 MG/M2, CYCLIC
     Route: 042
     Dates: start: 20080206, end: 20081015
  5. 5 FLUOROURACIL [Suspect]
     Active Substance: FLUOROURACIL
     Indication: COLORECTAL CANCER
     Dosage: 400 MG/M2, CYCLIC
     Route: 040
     Dates: start: 20080206, end: 20081015
  6. FOLIC ACID. [Suspect]
     Active Substance: FOLIC ACID
     Indication: COLORECTAL CANCER
     Dosage: 400 MG/M2, CYCLIC
     Route: 042
     Dates: start: 20080206, end: 20081015
  7. MILPAR [Concomitant]
     Indication: CONSTIPATION PROPHYLAXIS
     Dosage: 10 ML, BID
     Route: 048
     Dates: start: 20081029
  8. LANSOPRAZOLE. [Concomitant]
     Active Substance: LANSOPRAZOLE
     Indication: ANTACID THERAPY
     Dosage: 30 MG, QD
     Route: 048
     Dates: start: 20081023

REACTIONS (5)
  - Jaundice [Not Recovered/Not Resolved]
  - Cardiac arrest [Fatal]
  - Portal vein thrombosis [Fatal]
  - Haemolysis [Not Recovered/Not Resolved]
  - Hyperkalaemia [Not Recovered/Not Resolved]

NARRATIVE: CASE EVENT DATE: 20081023
